FAERS Safety Report 7278428-4 (Version None)
Quarter: 2011Q1

REPORT INFORMATION
  Report Type: 
  Country: None (occurrence: None)
  Receive Date: 20110207
  Receipt Date: 20110126
  Transmission Date: 20110831
  Serious: Yes (Other)
  Sender: FDA-Public Use
  Company Number: US-ELI_LILLY_AND_COMPANY-US201101006967

PATIENT
  Age: 59 Year
  Sex: Female

DRUGS (11)
  1. ZYPREXA [Suspect]
     Indication: NERVOUSNESS
     Dosage: 5 MG, DAILY (1/D)
     Dates: start: 20101001
  2. PROZAC [Suspect]
     Indication: MAJOR DEPRESSION
     Dosage: 10 MG, DAILY (1/D)
  3. PROZAC [Suspect]
     Dosage: 80 MG, DAILY (1/D)
     Dates: start: 20100101
  4. XANAX [Concomitant]
     Indication: ANXIETY
     Dosage: 0.25 MG, AS NEEDED
  5. PROZAC [Suspect]
     Dosage: 20 MG, DAILY (1/D)
  6. FISH OIL [Concomitant]
  7. PROZAC [Suspect]
     Dosage: 40 MG, DAILY (1/D)
  8. METOPROLOL TARTRATE [Concomitant]
     Indication: PALPITATIONS
     Dosage: 200 MG, DAILY (1/D)
  9. ZYPREXA [Suspect]
     Dosage: 5 MG, QOD
  10. QUINAPRIL [Concomitant]
     Dosage: 10 MG, DAILY (1/D)
  11. LUNESTA [Concomitant]
     Dosage: 3 MG, DAILY (1/D)

REACTIONS (14)
  - EMOTIONAL DISORDER [None]
  - OEDEMA PERIPHERAL [None]
  - BLOOD PRESSURE INCREASED [None]
  - WRONG TECHNIQUE IN DRUG USAGE PROCESS [None]
  - INTENTIONAL DRUG MISUSE [None]
  - TIC [None]
  - LOW DENSITY LIPOPROTEIN INCREASED [None]
  - HYPERHIDROSIS [None]
  - VITAMIN D DECREASED [None]
  - NERVOUSNESS [None]
  - OFF LABEL USE [None]
  - INCREASED APPETITE [None]
  - FLUID RETENTION [None]
  - WEIGHT INCREASED [None]
